FAERS Safety Report 4299908-X (Version None)
Quarter: 2004Q1

REPORT INFORMATION
  Report Type: 
  Country: None (occurrence: None)
  Receive Date: 20040219
  Receipt Date: 20040219
  Transmission Date: 20041129
  Serious: Yes (Hospitalization)
  Sender: FDA-Public Use
  Company Number: None

PATIENT
  Age: 41 Year
  Sex: Male

DRUGS (3)
  1. PHENYTOIN [Suspect]
     Indication: CONVULSION
     Dosage: 700 MG QD
  2. HYDROCHLOROTHIAZIDE [Concomitant]
  3. ATENOLOL [Concomitant]

REACTIONS (8)
  - ABNORMAL BEHAVIOUR [None]
  - COMA [None]
  - DIZZINESS [None]
  - DYSKINESIA [None]
  - NAUSEA [None]
  - PRURITUS [None]
  - TREMOR [None]
  - VOMITING [None]
